FAERS Safety Report 8427321-X (Version None)
Quarter: 2012Q2

REPORT INFORMATION
  Report Type: 
  Country: None (occurrence: None)
  Receive Date: 20120611
  Receipt Date: 20120531
  Transmission Date: 20120825
  Serious: Yes (Other)
  Sender: FDA-Public Use
  Company Number: US-ASTRAZENECA-2012SE36355

PATIENT
  Sex: Male

DRUGS (5)
  1. PROMETHAZINE [Concomitant]
     Indication: NASOPHARYNGITIS
     Dates: start: 19920101
  2. SYMBICORT [Suspect]
     Indication: PULMONARY CONGESTION
     Dosage: 80/4.5 MCG BID
     Route: 055
     Dates: start: 20120530
  3. CODEINE SULFATE [Concomitant]
     Indication: LUNG DISORDER
     Dates: start: 19920101
  4. PROMETHAZINE [Concomitant]
     Indication: LUNG DISORDER
     Dates: start: 19920101
  5. CODEINE SULFATE [Concomitant]
     Indication: NASOPHARYNGITIS
     Dates: start: 19920101

REACTIONS (7)
  - HYPOTENSION [None]
  - DYSARTHRIA [None]
  - MOBILITY DECREASED [None]
  - SPEECH DISORDER [None]
  - DYSPHEMIA [None]
  - DYSGRAPHIA [None]
  - CEREBROVASCULAR ACCIDENT [None]
